FAERS Safety Report 9707226 (Version 1)
Quarter: 2013Q4

REPORT INFORMATION
  Report Type: Spontaneous
  Country: US (occurrence: US)
  Receive Date: 20131125
  Receipt Date: 20131125
  Transmission Date: 20140711
  Serious: No
  Sender: FDA-Public Use
  Company Number: US-MALLINCKRODT-T201301669

PATIENT
  Age: 59 Year
  Sex: Female

DRUGS (2)
  1. KIT FOR THE PREPARATION OF TECHNETIUM (TC-99M) SESTAMIBI INJECTION [Suspect]
     Indication: CARDIAC STRESS TEST
     Dosage: UNK , UNK
     Dates: start: 20130412, end: 20130412
  2. ULTRA-TECHNEKOW DTE GENERATOR [Suspect]
     Indication: CARDIAC STRESS TEST
     Dosage: 33.8 MCI, SINGLE
     Dates: start: 20130412, end: 20130412

REACTIONS (1)
  - Rash generalised [Recovered/Resolved]
